FAERS Safety Report 19949656 (Version 1)
Quarter: 2021Q4

REPORT INFORMATION
  Report Type: Spontaneous
  Country: DE (occurrence: DE)
  Receive Date: 20211013
  Receipt Date: 20211013
  Transmission Date: 20220303
  Serious: Yes (Hospitalization)
  Sender: FDA-Public Use
  Company Number: DE-ABBVIE-21K-062-4115999-00

PATIENT
  Age: 26 Month
  Sex: Female
  Weight: 12 kg

DRUGS (4)
  1. VALPROATE SODIUM [Suspect]
     Active Substance: VALPROATE SODIUM
     Indication: Epilepsy
     Route: 048
  2. PHENOBARBITAL [Concomitant]
     Active Substance: PHENOBARBITAL
     Indication: Product used for unknown indication
  3. OMEPRAZOLE [Concomitant]
     Active Substance: OMEPRAZOLE
     Indication: Product used for unknown indication
  4. SABRIL [Concomitant]
     Active Substance: VIGABATRIN
     Indication: Product used for unknown indication

REACTIONS (3)
  - Electroencephalogram abnormal [Unknown]
  - Accidental overdose [Unknown]
  - Status epilepticus [Unknown]

NARRATIVE: CASE EVENT DATE: 20180906
